FAERS Safety Report 10021377 (Version 4)
Quarter: 2014Q2

REPORT INFORMATION
  Report Type: Spontaneous
  Country: US (occurrence: US)
  Receive Date: 20140319
  Receipt Date: 20140519
  Transmission Date: 20141212
  Serious: No
  Sender: FDA-Public Use
  Company Number: US-009507513-1403USA006373

PATIENT
  Age: 34 Year
  Sex: Male
  Weight: 101.59 kg

DRUGS (7)
  1. PEGINTRON [Suspect]
     Indication: HEPATITIS C
     Dosage: REDIPEN, 0.5 CC ONCE A WEEK
     Route: 058
     Dates: start: 20140221
  2. REBETOL [Suspect]
     Indication: HEPATITIS C
     Dosage: 1 DF, QD
     Route: 048
     Dates: start: 20140221
  3. RIBAPAK [Suspect]
     Dosage: 1200 MG, BID
  4. NEXIUM [Concomitant]
  5. DICYCLOMINE HYDROCHLORIDE [Concomitant]
  6. ADVIL [Concomitant]
  7. TRAMADOL HYDROCHLORIDE [Concomitant]

REACTIONS (5)
  - Dehydration [Recovering/Resolving]
  - Nausea [Recovering/Resolving]
  - Influenza like illness [Recovering/Resolving]
  - Vomiting [Recovering/Resolving]
  - Diarrhoea [Recovering/Resolving]
